FAERS Safety Report 21513554 (Version 1)
Quarter: 2022Q4

REPORT INFORMATION
  Report Type: Spontaneous
  Country: CA (occurrence: CA)
  Receive Date: 20221027
  Receipt Date: 20221027
  Transmission Date: 20230113
  Serious: Yes (Hospitalization, Other)
  Sender: FDA-Public Use
  Company Number: CA-JNJFOC-20221043424

PATIENT
  Sex: Female
  Weight: 3 kg

DRUGS (10)
  1. INVEGA SUSTENNA [Suspect]
     Active Substance: PALIPERIDONE PALMITATE
     Indication: Product used for unknown indication
     Route: 064
  2. INVEGA SUSTENNA [Suspect]
     Active Substance: PALIPERIDONE PALMITATE
  3. INVEGA SUSTENNA [Suspect]
     Active Substance: PALIPERIDONE PALMITATE
  4. ARIPIPRAZOLE [Suspect]
     Active Substance: ARIPIPRAZOLE
     Indication: Product used for unknown indication
     Route: 064
  5. CEFOTAXIME [Concomitant]
     Active Substance: CEFOTAXIME SODIUM
  6. ACYCLOVIR [Concomitant]
     Active Substance: ACYCLOVIR
  7. AMPICILLIN [Concomitant]
     Active Substance: AMPICILLIN
  8. FENTANYL [Concomitant]
     Active Substance: FENTANYL
  9. HEPARIN SODIUM [Concomitant]
     Active Substance: HEPARIN SODIUM
  10. LORAZEPAM [Concomitant]
     Active Substance: LORAZEPAM

REACTIONS (2)
  - Neonatal seizure [Recovered/Resolved]
  - Foetal exposure during pregnancy [Recovered/Resolved]
